FAERS Safety Report 8941971 (Version 1)
Quarter: 2012Q4

REPORT INFORMATION
  Report Type: Report from Study
  Country: GB (occurrence: GB)
  Receive Date: 20121203
  Receipt Date: 20121203
  Transmission Date: 20130627
  Serious: Yes (Hospitalization)
  Sender: FDA-Public Use
  Company Number: GB-JNJFOC-20121200097

PATIENT
  Age: 55 Year
  Sex: Male
  Weight: 85 kg

DRUGS (16)
  1. REMICADE [Suspect]
     Indication: PSORIASIS
     Route: 042
     Dates: start: 20091217, end: 20120725
  2. METHOTREXATE [Concomitant]
     Dates: start: 20100201
  3. CALCICHEW D3 [Concomitant]
     Dates: start: 20100611
  4. CALCITRIOL [Concomitant]
     Dates: start: 20100611
  5. CHLORPHENAMINE [Concomitant]
     Dates: start: 20100611
  6. CITALOPRAM [Concomitant]
     Dates: start: 20100611
  7. CODEINE PHOSPHATE [Concomitant]
     Dates: start: 20100611
  8. DOMPERIDONE [Concomitant]
     Dates: start: 20100611
  9. FOLIC ACID [Concomitant]
     Dates: start: 20100611
  10. HYDROXYZINE [Concomitant]
     Dates: start: 20100611
  11. MIRTAZAPINE [Concomitant]
     Dates: start: 20100611
  12. OTHER THERAPEUTIC DRUGS [Concomitant]
     Dates: start: 20100611
  13. OLANZAPINE [Concomitant]
     Dates: start: 20100611
  14. PARACETAMOL [Concomitant]
     Dates: start: 20100611
  15. ZOLPIDEM [Concomitant]
  16. BISOPROLOL FUMARATE [Concomitant]

REACTIONS (1)
  - Renal impairment [Not Recovered/Not Resolved]
